FAERS Safety Report 7927870-4 (Version None)
Quarter: 2011Q4

REPORT INFORMATION
  Report Type: 
  Country: None (occurrence: None)
  Receive Date: 20111118
  Receipt Date: 20111118
  Transmission Date: 20120403
  Serious: Yes (Hospitalization)
  Sender: FDA-Public Use
  Company Number: None

PATIENT
  Age: 61 Year
  Sex: Female
  Weight: 68.9 kg

DRUGS (1)
  1. YERVOY [Suspect]

REACTIONS (2)
  - TYPE III IMMUNE COMPLEX MEDIATED REACTION [None]
  - COLITIS [None]
